FAERS Safety Report 10244394 (Version 1)
Quarter: 2014Q2

REPORT INFORMATION
  Report Type: Spontaneous
  Country: US (occurrence: US)
  Receive Date: 20140618
  Receipt Date: 20140618
  Transmission Date: 20141212
  Serious: No
  Sender: FDA-Public Use
  Company Number: US-TARO-2013P1013703

PATIENT
  Age: 85 Year
  Sex: Male
  Weight: 81.65 kg

DRUGS (1)
  1. BETAMETHASONE DIPROPIONATE LOTION (AUGMENTED) USP 0.05% [Suspect]
     Route: 061
     Dates: start: 20130714

REACTIONS (3)
  - Drug ineffective [Not Recovered/Not Resolved]
  - Alopecia [Not Recovered/Not Resolved]
  - Skin disorder [Not Recovered/Not Resolved]
